FAERS Safety Report 16465573 (Version 3)
Quarter: 2019Q4

REPORT INFORMATION
  Report Type: Spontaneous
  Country: US (occurrence: US)
  Receive Date: 20190621
  Receipt Date: 20191126
  Transmission Date: 20200122
  Serious: Yes (Hospitalization, Other)
  Sender: FDA-Public Use
  Company Number: US-PFIZER INC-2019261714

PATIENT
  Age: 28 Year
  Sex: Female

DRUGS (1)
  1. LIDOCAINE HCL [Suspect]
     Active Substance: LIDOCAINE HYDROCHLORIDE
     Indication: CANCER PAIN
     Dosage: UNK (RAPID AND CONTINUOUS INFUSIONS)

REACTIONS (3)
  - Drug ineffective [Recovering/Resolving]
  - Anxiety [Unknown]
  - Delirium [Unknown]
